FAERS Safety Report 9690925 (Version 2)
Quarter: 2013Q4

REPORT INFORMATION
  Report Type: Spontaneous
  Country: US (occurrence: US)
  Receive Date: 20131115
  Receipt Date: 20131209
  Transmission Date: 20140711
  Serious: Yes (Other)
  Sender: FDA-Public Use
  Company Number: US-PFIZER INC-2013326140

PATIENT
  Age: 63 Year
  Sex: Female
  Weight: 63.49 kg

DRUGS (2)
  1. EFFEXOR XR [Suspect]
     Dosage: 150 MG, 2X/DAY
     Route: 048
  2. XANAX [Concomitant]
     Indication: SLEEP DISORDER
     Dosage: UNK, 2X/DAY

REACTIONS (8)
  - Fall [Unknown]
  - Joint injury [Unknown]
  - Head injury [Unknown]
  - Foot fracture [Unknown]
  - Back disorder [Unknown]
  - Body height decreased [Unknown]
  - Exercise lack of [Unknown]
  - Depression [Unknown]
